FAERS Safety Report 8825996 (Version 2)
Quarter: 2015Q3

REPORT INFORMATION
  Report Type: Report from Study
  Country: FR (occurrence: FR)
  Receive Date: 20121005
  Receipt Date: 20150910
  Transmission Date: 20151125
  Serious: Yes (Hospitalization, Other)
  Sender: FDA-Public Use
  Company Number: FR-ROCHE-1135001

PATIENT
  Age: 45 Year
  Sex: Female

DRUGS (13)
  1. TOCILIZUMAB [Suspect]
     Active Substance: TOCILIZUMAB
     Route: 042
     Dates: start: 20101020
  2. TOPALGIC (FRANCE) [Concomitant]
     Active Substance: TRAMADOL
     Dosage: 1 TO 4 CAPSULES /DAY
     Route: 065
  3. APRANAX [Concomitant]
     Active Substance: NAPROXEN
     Route: 065
  4. TOCILIZUMAB [Suspect]
     Active Substance: TOCILIZUMAB
     Route: 042
     Dates: start: 20100924
  5. TOCILIZUMAB [Suspect]
     Active Substance: TOCILIZUMAB
     Route: 042
     Dates: start: 20101216
  6. RITUXIMAB [Suspect]
     Active Substance: RITUXIMAB
     Indication: RHEUMATOID ARTHRITIS
     Route: 065
  7. IXPRIM [Concomitant]
     Active Substance: ACETAMINOPHEN\TRAMADOL HYDROCHLORIDE
  8. TOCILIZUMAB [Suspect]
     Active Substance: TOCILIZUMAB
     Route: 042
     Dates: start: 20101119
  9. CORTANCYL [Concomitant]
     Active Substance: PREDNISONE
     Indication: RHEUMATOID ARTHRITIS
     Route: 048
  10. MOBIC [Concomitant]
     Active Substance: MELOXICAM
     Route: 065
  11. TOCILIZUMAB [Suspect]
     Active Substance: TOCILIZUMAB
     Indication: RHEUMATOID ARTHRITIS
     Route: 042
     Dates: start: 20100827
  12. ARAVA [Concomitant]
     Active Substance: LEFLUNOMIDE
     Indication: RHEUMATOID ARTHRITIS
     Route: 048
     Dates: start: 20080710
  13. DEROXAT [Concomitant]
     Active Substance: PAROXETINE HYDROCHLORIDE

REACTIONS (14)
  - Abdominal pain [Recovered/Resolved]
  - Infection [Recovered/Resolved]
  - Haemorrhoids [Recovered/Resolved]
  - Tooth abscess [Recovered/Resolved]
  - Hepatocellular injury [Recovered/Resolved]
  - Cholelithiasis [Not Recovered/Not Resolved]
  - Genital prolapse [Unknown]
  - Vomiting [Recovered/Resolved]
  - Myocarditis [Not Recovered/Not Resolved]
  - Bronchitis [Recovered/Resolved]
  - Cholestasis [Recovered/Resolved]
  - Diarrhoea [Recovered/Resolved]
  - Paronychia [Recovered/Resolved]
  - Hepatitis [Recovered/Resolved]

NARRATIVE: CASE EVENT DATE: 201011
